FAERS Safety Report 23783000 (Version 1)
Quarter: 2024Q2

REPORT INFORMATION
  Report Type: Spontaneous
  Country: CH (occurrence: CH)
  Receive Date: 20240425
  Receipt Date: 20240425
  Transmission Date: 20240716
  Serious: Yes (Life-Threatening, Hospitalization)
  Sender: FDA-Public Use
  Company Number: CH-MYLANLABS-2024M1036485

PATIENT
  Age: 49 Year
  Sex: Male

DRUGS (34)
  1. CLOZAPINE [Suspect]
     Active Substance: CLOZAPINE
     Indication: Schizophrenia
     Dosage: UNK
     Route: 065
  2. CLOZAPINE [Suspect]
     Active Substance: CLOZAPINE
     Indication: Malignant catatonia
  3. ARIPIPRAZOLE [Suspect]
     Active Substance: ARIPIPRAZOLE
     Indication: Schizophrenia
     Dosage: UNK
     Route: 065
  4. ARIPIPRAZOLE [Suspect]
     Active Substance: ARIPIPRAZOLE
     Indication: Malignant catatonia
  5. LORAZEPAM [Suspect]
     Active Substance: LORAZEPAM
     Indication: Schizophrenia
     Dosage: 1 MILLIGRAM, Q8H
     Route: 065
  6. LORAZEPAM [Suspect]
     Active Substance: LORAZEPAM
     Indication: Malignant catatonia
     Dosage: 1.5 MILLIGRAM, QID; DOSE INCREASED
     Route: 065
  7. LORAZEPAM [Suspect]
     Active Substance: LORAZEPAM
     Dosage: UNK; AGAIN INITIATED ON HIGH-DOSE
     Route: 065
  8. LORAZEPAM [Suspect]
     Active Substance: LORAZEPAM
     Dosage: 36 MILLIGRAM, QD
     Route: 065
  9. LORAZEPAM [Suspect]
     Active Substance: LORAZEPAM
     Dosage: 2 MILLIGRAM, Q8H
     Route: 065
  10. LORAZEPAM [Suspect]
     Active Substance: LORAZEPAM
     Indication: Schizophrenia
     Dosage: 2 MILLIGRAM
     Route: 030
  11. LORAZEPAM [Suspect]
     Active Substance: LORAZEPAM
     Indication: Malignant catatonia
     Dosage: 20 MILLIGRAM, QD
     Route: 030
  12. LORAZEPAM [Suspect]
     Active Substance: LORAZEPAM
     Dosage: 10 MILLIGRAM, QD
     Route: 030
  13. OLANZAPINE [Suspect]
     Active Substance: OLANZAPINE
     Indication: Schizophrenia
     Dosage: 10 MILLIGRAM, QD; AT BEDTIME
     Route: 065
  14. OLANZAPINE [Suspect]
     Active Substance: OLANZAPINE
     Indication: Malignant catatonia
     Dosage: 5 MILLIGRAM, QD; AT NIGHT; THERAPY INITIATED AGAIN
     Route: 065
  15. OLANZAPINE [Suspect]
     Active Substance: OLANZAPINE
     Dosage: 20 MILLIGRAM, QD; TITRATED; NIGHTLY
     Route: 065
  16. DIAZEPAM [Suspect]
     Active Substance: DIAZEPAM
     Indication: Schizophrenia
     Dosage: UNK; INITIAL DOSE NOT STATED
     Route: 042
  17. DIAZEPAM [Suspect]
     Active Substance: DIAZEPAM
     Indication: Malignant catatonia
     Dosage: 12.5 MILLIGRAM, QID; TITRATED
     Route: 042
  18. VALPROIC ACID [Suspect]
     Active Substance: VALPROIC ACID
     Indication: Schizophrenia
     Dosage: 800 MILLIGRAM, TID; 3 TIMES A DAY
     Route: 042
  19. VALPROIC ACID [Suspect]
     Active Substance: VALPROIC ACID
     Indication: Malignant catatonia
  20. CHLORPROMAZINE [Suspect]
     Active Substance: CHLORPROMAZINE
     Indication: Schizophrenia
     Dosage: UNK
     Route: 065
  21. CHLORPROMAZINE [Suspect]
     Active Substance: CHLORPROMAZINE
     Indication: Malignant catatonia
  22. LITHIUM [Suspect]
     Active Substance: LITHIUM
     Indication: Schizophrenia
     Dosage: UNK
     Route: 065
  23. LITHIUM [Suspect]
     Active Substance: LITHIUM
     Indication: Malignant catatonia
  24. PIMAVANSERIN [Suspect]
     Active Substance: PIMAVANSERIN
     Indication: Schizophrenia
     Dosage: UNK
     Route: 065
  25. PIMAVANSERIN [Suspect]
     Active Substance: PIMAVANSERIN
     Indication: Malignant catatonia
  26. MIDAZOLAM [Concomitant]
     Active Substance: MIDAZOLAM
     Indication: Status epilepticus
     Dosage: UNK
     Route: 042
  27. LEVETIRACETAM [Concomitant]
     Active Substance: LEVETIRACETAM
     Indication: Schizophrenia
     Dosage: UNK
     Route: 065
  28. LEVETIRACETAM [Concomitant]
     Active Substance: LEVETIRACETAM
     Indication: Malignant catatonia
  29. ENOXAPARIN SODIUM [Concomitant]
     Active Substance: ENOXAPARIN SODIUM
     Indication: Deep vein thrombosis
     Dosage: UNK
     Route: 065
  30. Immunoglobulin [Concomitant]
     Indication: Evidence based treatment
     Dosage: UNK
     Route: 065
  31. AMANTADINE [Concomitant]
     Active Substance: AMANTADINE
     Indication: Schizophrenia
     Dosage: 600 MILLIGRAM
     Route: 065
  32. AMANTADINE [Concomitant]
     Active Substance: AMANTADINE
     Indication: Malignant catatonia
     Dosage: UNK;  THERAPY WAS TAPERED OFF
     Route: 065
  33. QUETIAPINE [Concomitant]
     Active Substance: QUETIAPINE
     Indication: Schizophrenia
     Dosage: 25 MILLIGRAM
     Route: 065
  34. QUETIAPINE [Concomitant]
     Active Substance: QUETIAPINE
     Indication: Malignant catatonia

REACTIONS (2)
  - Drug ineffective [Unknown]
  - Neuroleptic malignant syndrome [Unknown]
